FAERS Safety Report 9404465 (Version 2)
Quarter: 2013Q3

REPORT INFORMATION
  Report Type: Spontaneous
  Country: US (occurrence: US)
  Receive Date: 20130717
  Receipt Date: 20130808
  Transmission Date: 20140515
  Serious: No
  Sender: FDA-Public Use
  Company Number: US-PFIZER INC-2013207704

PATIENT
  Age: 83 Year
  Sex: Male
  Weight: 62.59 kg

DRUGS (4)
  1. LYRICA [Suspect]
     Indication: NEURALGIA
     Dosage: 75 MG, 2X/DAY
     Route: 048
     Dates: start: 20130614, end: 20130713
  2. LYRICA [Suspect]
     Indication: CENTRAL PAIN SYNDROME
     Dosage: 75 MG, 2X/DAY
     Route: 048
     Dates: start: 2013
  3. ZOCOR [Concomitant]
     Dosage: 20 MG, UNK
  4. AMBIEN [Concomitant]
     Indication: SOMNOLENCE
     Dosage: UNK

REACTIONS (5)
  - Off label use [Unknown]
  - Tongue discolouration [Unknown]
  - Hypoaesthesia oral [Unknown]
  - Paraesthesia oral [Unknown]
  - Somnolence [Unknown]
